FAERS Safety Report 5363715-7 (Version None)
Quarter: 2007Q2

REPORT INFORMATION
  Report Type: 
  Country: None (occurrence: None)
  Receive Date: 20070620
  Receipt Date: 20070612
  Transmission Date: 20071010
  Serious: Yes (Hospitalization)
  Sender: FDA-Public Use
  Company Number: US-ROCHE-501856

PATIENT
  Age: 59 Year
  Sex: Female

DRUGS (1)
  1. BONIVA [Suspect]
     Indication: DRUG USE FOR UNKNOWN INDICATION
     Dosage: TOOK BONIVA ABOUT 3 OR 4 MONTHS AGO FOR 2 MONTHS.
     Route: 048

REACTIONS (2)
  - DIARRHOEA [None]
  - FEMUR FRACTURE [None]
